FAERS Safety Report 8487996-6 (Version None)
Quarter: 2012Q3

REPORT INFORMATION
  Report Type: 
  Country: None (occurrence: None)
  Receive Date: 20120705
  Receipt Date: 20120629
  Transmission Date: 20120928
  Serious: Yes (Other)
  Sender: FDA-Public Use
  Company Number: PHHY2012CO042376

PATIENT
  Sex: Female

DRUGS (5)
  1. ZOLEDRONOC ACID [Suspect]
     Dosage: 5 MG, YEARLY
     Route: 042
     Dates: start: 20120426
  2. CALCIUM [Concomitant]
  3. SERTRALINE HYDROCHLORIDE [Concomitant]
  4. ZOLEDRONOC ACID [Suspect]
     Indication: OSTEOPOROSIS
     Dosage: 5 MG, YEARLY
     Route: 042
     Dates: start: 20110426
  5. HYDROXYCHLOROQUINE SULFATE [Concomitant]

REACTIONS (4)
  - BRONCHITIS [None]
  - CHILLS [None]
  - INFLUENZA LIKE ILLNESS [None]
  - DISCOMFORT [None]
